FAERS Safety Report 17760947 (Version 3)
Quarter: 2020Q2

REPORT INFORMATION
  Report Type: Spontaneous
  Country: US (occurrence: US)
  Receive Date: 20200508
  Receipt Date: 20200514
  Transmission Date: 20200714
  Serious: No
  Sender: FDA-Public Use
  Company Number: US-PFIZER INC-2020183052

PATIENT
  Age: 63 Year
  Sex: Male
  Weight: 124.74 kg

DRUGS (3)
  1. AMLODIPINE [Concomitant]
     Active Substance: AMLODIPINE BESYLATE
     Indication: HYPERTENSION
     Dosage: UNK
  2. LISINOPRIL. [Concomitant]
     Active Substance: LISINOPRIL
     Indication: HYPERTENSION
     Dosage: UNK
  3. VENLAFAXINE HCL [Suspect]
     Active Substance: VENLAFAXINE HYDROCHLORIDE
     Indication: DEPRESSION
     Dosage: 300 MG (TWO CAPSULES) IN THE MORNING AND 150 MG (ONE CAPSULE) IN THE EVENING
     Route: 048

REACTIONS (2)
  - Prescribed overdose [Unknown]
  - Therapeutic product effect incomplete [Unknown]
